FAERS Safety Report 7236071-7 (Version None)
Quarter: 2011Q1

REPORT INFORMATION
  Report Type: 
  Country: None (occurrence: None)
  Receive Date: 20110110
  Receipt Date: 20110103
  Transmission Date: 20110831
  Serious: Yes (Other)
  Sender: FDA-Public Use
  Company Number: CTI_01289_2011

PATIENT
  Sex: Female

DRUGS (9)
  1. ENZYMES [Concomitant]
  2. PEPCID [Concomitant]
  3. MINERAL TAB [Concomitant]
  4. OMEGA-3 FATTY ACIDS [Concomitant]
  5. IBUPROFEN [Concomitant]
  6. HYOSCYAMINE SULFATE 0.375 MG [Suspect]
     Indication: BLADDER SPASM
     Dosage: 0.375 MG PRN, TWICE A DAY FOR OVER A YEAR AS NEEDED
  7. HYOSCYAMINE SULFATE 0.375 MG [Suspect]
     Indication: IRRITABLE BOWEL SYNDROME
     Dosage: 0.375 MG PRN, TWICE A DAY FOR OVER A YEAR AS NEEDED
  8. VITAMIN D [Concomitant]
  9. MULTI-VITAMINS [Concomitant]

REACTIONS (5)
  - HOT FLUSH [None]
  - BREAST TENDERNESS [None]
  - PREMENSTRUAL SYNDROME [None]
  - OVARIAN CYST [None]
  - HORMONE LEVEL ABNORMAL [None]
